FAERS Safety Report 9281539 (Version 2)
Quarter: 2013Q2

REPORT INFORMATION
  Report Type: Spontaneous
  Country: FR (occurrence: FR)
  Receive Date: 20130509
  Receipt Date: 20130510
  Transmission Date: 20140414
  Serious: Yes (Death, Hospitalization, Other)
  Sender: FDA-Public Use
  Company Number: FR-PFIZER INC-2013139471

PATIENT
  Age: 19 Year
  Sex: Female

DRUGS (12)
  1. EFFEXOR LP [Suspect]
     Dosage: 37.5 MG, DAILY
     Route: 048
     Dates: start: 20130327
  2. EFFEXOR LP [Suspect]
     Dosage: 37.5 MG X2, DAILY
     Route: 048
     Dates: start: 20130403, end: 20130409
  3. NOZINAN [Suspect]
     Dosage: 15-0-20 DROPS, DAILY
     Route: 048
     Dates: start: 20130326, end: 20130409
  4. RIVOTRIL [Concomitant]
     Dosage: UNK
     Dates: start: 201301
  5. LAROXYL [Concomitant]
     Dosage: 50 MG, UNK
     Dates: start: 201301
  6. CYMBALTA [Concomitant]
     Dosage: UNK
     Dates: start: 201301, end: 20130329
  7. TOPALGIC [Concomitant]
     Dosage: UNK
     Dates: start: 201301
  8. INEXIUM [Concomitant]
     Dosage: UNK
     Dates: start: 201301
  9. TARDYFERON [Concomitant]
     Dosage: UNK
     Dates: start: 201301
  10. TERCIAN [Concomitant]
     Dosage: UNK
     Dates: start: 201301, end: 201303
  11. LUTERAN [Concomitant]
     Dosage: UNK
     Dates: start: 201301
  12. PONSTYL [Concomitant]
     Dosage: UNK
     Dates: start: 201301

REACTIONS (25)
  - Ejection fraction decreased [Fatal]
  - Ventricular tachycardia [Fatal]
  - Depression [Unknown]
  - Diet refusal [Unknown]
  - Social avoidant behaviour [Unknown]
  - Arrhythmia [Unknown]
  - Hypotension [Unknown]
  - Right ventricular dysfunction [Unknown]
  - Cardiomegaly [Unknown]
  - Haemodynamic test abnormal [Unknown]
  - Pulmonary artery dilatation [Unknown]
  - Left ventricular failure [Unknown]
  - Ventricular septal defect [Unknown]
  - Left ventricular dysfunction [Unknown]
  - Anuria [Unknown]
  - Electrocardiogram QRS complex prolonged [Unknown]
  - Cardiac output decreased [Unknown]
  - Ventricular hypokinesia [Unknown]
  - Pulmonary arterial pressure abnormal [Unknown]
  - Vertigo [Unknown]
  - Escherichia test positive [Unknown]
  - Pyrexia [Unknown]
  - Hyperhidrosis [Unknown]
  - Pulse pressure decreased [Unknown]
  - Cardiac disorder [Unknown]
